FAERS Safety Report 7554646-2 (Version None)
Quarter: 2011Q2

REPORT INFORMATION
  Report Type: 
  Country: None (occurrence: None)
  Receive Date: 20110617
  Receipt Date: 20110614
  Transmission Date: 20111010
  Serious: Yes (Hospitalization, Other)
  Sender: FDA-Public Use
  Company Number: US-PFIZER INC-2010045834

PATIENT
  Sex: Male

DRUGS (10)
  1. OXYCODONE [Concomitant]
     Indication: PAIN
     Dosage: UNK
     Dates: start: 20060101, end: 20090101
  2. FLUCONAZOLE [Concomitant]
     Indication: ANTIFUNGAL TREATMENT
     Dosage: UNK
     Dates: start: 20070101, end: 20090101
  3. ISOSORBIDE MONONITRATE [Concomitant]
     Indication: HYPERTENSION
     Dosage: UNK
     Dates: start: 20070101, end: 20090101
  4. METOPROLOL [Concomitant]
     Indication: HYPERTENSION
     Dosage: UNK
     Dates: start: 20070101, end: 20090101
  5. CHANTIX [Suspect]
     Indication: SMOKING CESSATION THERAPY
     Dosage: 1 MG, UNK
     Route: 048
     Dates: start: 20080423, end: 20081001
  6. PLAVIX [Concomitant]
     Indication: THROMBOSIS PROPHYLAXIS
     Dosage: UNK
     Dates: start: 20070101, end: 20090101
  7. METOPROLOL [Concomitant]
     Indication: ANGINA PECTORIS
  8. HYDROMORPHONE [Concomitant]
     Indication: PAIN
     Dosage: UNK
     Dates: start: 20060101, end: 20090101
  9. PROMETHAZINE [Concomitant]
     Indication: HYPERSENSITIVITY
     Dosage: UNK
     Dates: start: 20060101, end: 20090101
  10. ISOSORBIDE MONONITRATE [Concomitant]
     Indication: ANGINA PECTORIS

REACTIONS (9)
  - JOINT RANGE OF MOTION DECREASED [None]
  - DISORIENTATION [None]
  - DIZZINESS [None]
  - JOINT INJURY [None]
  - LOSS OF CONSCIOUSNESS [None]
  - MUSCULOSKELETAL PAIN [None]
  - EPISTAXIS [None]
  - COORDINATION ABNORMAL [None]
  - HEADACHE [None]
